FAERS Safety Report 23316403 (Version 1)
Quarter: 2023Q4

REPORT INFORMATION
  Report Type: Spontaneous
  Country: US (occurrence: None)
  Receive Date: 20231219
  Receipt Date: 20231219
  Transmission Date: 20240110
  Serious: No
  Sender: FDA-Public Use
  Company Number: US-ROCHE-3452241

PATIENT
  Sex: Male

DRUGS (2)
  1. HEMLIBRA [Suspect]
     Active Substance: EMICIZUMAB-KXWH
     Indication: Factor VIII deficiency
     Route: 058
     Dates: start: 202003
  2. HEMLIBRA [Suspect]
     Active Substance: EMICIZUMAB-KXWH
     Route: 058
     Dates: start: 202003

REACTIONS (1)
  - Haemorrhage [Unknown]

NARRATIVE: CASE EVENT DATE: 20231015
